FAERS Safety Report 8738754 (Version 2)
Quarter: 2012Q4

REPORT INFORMATION
  Report Type: 
  Country: US (occurrence: US)
  Receive Date: 20120823
  Receipt Date: 20121017
  Transmission Date: 20130627
  Serious: Yes (Other)
  Sender: FDA-Public Use
  Company Number: US-PFIZER INC-2012206530

PATIENT
  Age: 69 Year
  Sex: Female
  Weight: 51.2 kg

DRUGS (6)
  1. ZOLOFT [Suspect]
     Indication: ANXIETY DISORDER
     Dosage: 25 mg, 1x/day
     Route: 048
     Dates: start: 20120821, end: 20120821
  2. XANAX [Concomitant]
     Indication: INSOMNIA
     Dosage: 0.5 mg, as needed
     Dates: start: 1991
  3. XANAX [Concomitant]
     Indication: ANXIETY
     Dosage: 1.5 mg at HS
  4. ZANTAC [Concomitant]
     Indication: GASTROOESOPHAGEAL REFLUX DISEASE
     Dosage: 75 mg, as needed
     Dates: start: 2007
  5. DIFLUCAN [Concomitant]
     Dosage: Vaginally PRN
     Route: 067
     Dates: start: 20120815, end: 20120815
  6. ESTRACE [Concomitant]
     Dosage: Vaginally PRN
     Route: 067
     Dates: start: 20120815, end: 20120815

REACTIONS (7)
  - Mental impairment [Not Recovered/Not Resolved]
  - Dissociation [Recovered/Resolved]
  - Cognitive disorder [Recovered/Resolved]
  - Thinking abnormal [Recovered/Resolved]
  - Disturbance in attention [Not Recovered/Not Resolved]
  - Feeling abnormal [Not Recovered/Not Resolved]
  - Fatigue [Recovered/Resolved]
